FAERS Safety Report 24606908 (Version 1)
Quarter: 2024Q4

REPORT INFORMATION
  Report Type: Spontaneous
  Country: US (occurrence: US)
  Receive Date: 20241112
  Receipt Date: 20241112
  Transmission Date: 20250114
  Serious: Yes (Hospitalization, Other)
  Sender: SANDOZ
  Company Number: US-SANDOZ-SDZ2024US093849

PATIENT
  Age: 56 Year
  Sex: Female
  Weight: 56.9 kg

DRUGS (7)
  1. ALPELISIB [Suspect]
     Active Substance: ALPELISIB
     Indication: Product used for unknown indication
     Dosage: 300 MG, QD, D1-28
     Route: 048
     Dates: start: 20241101, end: 20241101
  2. FULVESTRANT [Suspect]
     Active Substance: FULVESTRANT
     Indication: Endometrial cancer
     Dosage: 500 MG, D1 AND D15 OF CYCLE 1, THEN D1  OF EACH 28 DAY CYCLE
     Route: 030
     Dates: start: 20241101, end: 20241101
  3. LANTUS [Concomitant]
     Active Substance: INSULIN GLARGINE
     Indication: Type 2 diabetes mellitus
     Dosage: 1-125
     Route: 065
  4. LORAZEPAM [Concomitant]
     Active Substance: LORAZEPAM
     Indication: Anxiety
     Dosage: 0.5 MG, PRN
     Route: 048
     Dates: start: 20241102
  5. OXYCODONE [Concomitant]
     Active Substance: OXYCODONE
     Indication: Pain
     Dosage: 5 MG, PRN
     Route: 048
     Dates: start: 20241102
  6. PROMETHAZINE [Concomitant]
     Active Substance: PROMETHAZINE HYDROCHLORIDE
     Indication: Nausea
     Dosage: 12.5 MG, PRN
     Route: 042
     Dates: start: 20241102
  7. THIAMINE [Concomitant]
     Active Substance: THIAMINE
     Indication: Dehydration
     Dosage: 200 MG, Q8H, (TOTAL DAILY DOSE: 600 MG)
     Route: 030
     Dates: start: 20241102

REACTIONS (4)
  - Dehydration [Not Recovered/Not Resolved]
  - Hypothermia [Recovering/Resolving]
  - Tachycardia [Recovering/Resolving]
  - Asthenia [Recovering/Resolving]

NARRATIVE: CASE EVENT DATE: 20241102
